FAERS Safety Report 5153612-4 (Version None)
Quarter: 2006Q4

REPORT INFORMATION
  Report Type: 
  Country: None (occurrence: None)
  Receive Date: 20061113
  Receipt Date: 20061030
  Transmission Date: 20070319
  Serious: Yes (Hospitalization)
  Sender: FDA-Public Use
  Company Number: 231472

PATIENT
  Age: 50 Year
  Sex: Female
  Weight: 63.7 kg

DRUGS (4)
  1. RITUXIMAB OR PLACEBO (RITUXIMAB)CONC FOR SOLUTION FOR INFUSION [Suspect]
     Indication: RHEUMATOID ARTHRITIS
     Dosage: 500 MG, DAYS 1 + 15, INTRAVENOUS
     Route: 042
  2. METHOTREXATE [Concomitant]
  3. NAPROXEN [Concomitant]
  4. ACETAMINOPHEN [Concomitant]

REACTIONS (2)
  - APPENDICITIS [None]
  - IMPAIRED HEALING [None]
